FAERS Safety Report 12379760 (Version 3)
Quarter: 2020Q3

REPORT INFORMATION
  Report Type: Report from Study
  Country: JP (occurrence: JP)
  Receive Date: 20160518
  Receipt Date: 20160823
  Transmission Date: 20201105
  Serious: Yes (Other)
  Sender: FDA-Public Use
  Company Number: JP-ROCHE-1658025

PATIENT
  Age: 61 Year
  Sex: Female
  Weight: 53 kg

DRUGS (9)
  1. ALECTINIB. [Suspect]
     Active Substance: ALECTINIB
     Indication: LUNG ADENOCARCINOMA
     Route: 048
     Dates: start: 20140918, end: 20141121
  2. LULLAN [Concomitant]
     Active Substance: PEROSPIRONE HYDROCHLORIDE
     Route: 048
  3. CERCINE [Concomitant]
     Active Substance: DIAZEPAM
     Route: 048
  4. ALECTINIB. [Suspect]
     Active Substance: ALECTINIB
     Indication: LUNG ADENOCARCINOMA
     Route: 048
     Dates: start: 20150814, end: 20160115
  5. ROHYPNOL [Concomitant]
     Active Substance: FLUNITRAZEPAM
     Route: 048
  6. ALECTINIB. [Suspect]
     Active Substance: ALECTINIB
     Indication: LUNG ADENOCARCINOMA
     Route: 048
     Dates: start: 20160219
  7. JZOLOFT [Concomitant]
     Active Substance: SERTRALINE HYDROCHLORIDE
     Route: 048
  8. DORAL [Concomitant]
     Active Substance: QUAZEPAM
     Route: 048
     Dates: start: 2014, end: 20140919
  9. ALECTINIB. [Suspect]
     Active Substance: ALECTINIB
     Indication: LUNG ADENOCARCINOMA
     Route: 048
     Dates: start: 20141205, end: 20150807

REACTIONS (10)
  - Neutrophil count decreased [Recovered/Resolved]
  - White blood cell count decreased [Recovered/Resolved]
  - Oedema [Not Recovered/Not Resolved]
  - Papule [Recovered/Resolved]
  - Rash maculo-papular [Recovered/Resolved]
  - Depression [Recovering/Resolving]
  - Alanine aminotransferase increased [Not Recovered/Not Resolved]
  - Hyperuricaemia [Recovered/Resolved]
  - Decreased appetite [Recovered/Resolved]
  - Aspartate aminotransferase increased [Not Recovered/Not Resolved]

NARRATIVE: CASE EVENT DATE: 20140924
